FAERS Safety Report 4383389-1 (Version None)
Quarter: 2004Q2

REPORT INFORMATION
  Report Type: 
  Country: None (occurrence: None)
  Receive Date: 20040623
  Receipt Date: 20040615
  Transmission Date: 20050107
  Serious: Yes (Death)
  Sender: FDA-Public Use
  Company Number: PHFR2004GB02437

PATIENT
  Age: 29 Year
  Sex: Male

DRUGS (2)
  1. CLOZARIL [Suspect]
     Indication: SCHIZOPHRENIA
     Route: 048
     Dates: start: 20030802, end: 20040614
  2. HEROIN [Suspect]
     Route: 065

REACTIONS (2)
  - ACCIDENTAL OVERDOSE [None]
  - COMPLETED SUICIDE [None]
